FAERS Safety Report 10208970 (Version 1)
Quarter: 2014Q2

REPORT INFORMATION
  Report Type: Spontaneous
  Country: GB (occurrence: GB)
  Receive Date: 20140530
  Receipt Date: 20140530
  Transmission Date: 20141212
  Serious: Yes (Disabling, Other)
  Sender: FDA-Public Use
  Company Number: PHHY2014GB065014

PATIENT
  Age: 69 Year
  Sex: Female
  Weight: 75 kg

DRUGS (6)
  1. BISOPROLOL [Suspect]
     Dates: start: 20140326
  2. CANDESARTAN [Concomitant]
     Dates: start: 20140122
  3. CELECOXIB [Concomitant]
     Dates: start: 20140226, end: 20140328
  4. CLOBETASONE BUTYRATE [Concomitant]
     Dates: start: 20140122
  5. DOXAZOSIN [Concomitant]
     Dates: start: 20140512
  6. INDAPAMIDE [Concomitant]
     Dates: start: 20140205, end: 20140402

REACTIONS (3)
  - Crying [Recovered/Resolved]
  - Depressed mood [Recovered/Resolved]
  - Fatigue [Recovered/Resolved]
